FAERS Safety Report 9243400 (Version 1)
Quarter: 2013Q2

REPORT INFORMATION
  Report Type: Spontaneous
  Country: SG (occurrence: SG)
  Receive Date: 20130421
  Receipt Date: 20130421
  Transmission Date: 20140414
  Serious: Yes (Other)
  Sender: FDA-Public Use
  Company Number: SG-ABBOTT-13X-141-1077509-00

PATIENT
  Age: 6 Year
  Sex: Male

DRUGS (1)
  1. KLACID [Suspect]
     Indication: MYCOPLASMA INFECTION
     Dosage: SUSPENSION
     Route: 048
     Dates: start: 20130318, end: 20130319

REACTIONS (7)
  - Aggression [Recovered/Resolved]
  - Disorientation [Recovered/Resolved]
  - Neurosis [Recovered/Resolved]
  - Hyperhidrosis [Recovered/Resolved]
  - Aphasia [Recovered/Resolved]
  - Confusional state [Recovered/Resolved]
  - Chills [Recovered/Resolved]
